FAERS Safety Report 6634863-6 (Version None)
Quarter: 2010Q1

REPORT INFORMATION
  Report Type: 
  Country: None (occurrence: None)
  Receive Date: 20100315
  Receipt Date: 20100304
  Transmission Date: 20100710
  Serious: Yes (Other)
  Sender: FDA-Public Use
  Company Number: FR-PFIZER INC-2010028583

PATIENT

DRUGS (1)
  1. XALATAN [Suspect]

REACTIONS (1)
  - LUNG DISORDER [None]
